FAERS Safety Report 11052728 (Version 1)
Quarter: 2015Q2

REPORT INFORMATION
  Report Type: Spontaneous
  Country: US (occurrence: None)
  Receive Date: 20150420
  Receipt Date: 20150420
  Transmission Date: 20150821
  Serious: No
  Sender: FDA-Public Use
  Company Number: None

PATIENT
  Age: 61 Year
  Sex: Male
  Weight: 79.38 kg

DRUGS (3)
  1. CELEBREX [Suspect]
     Active Substance: CELECOXIB
     Indication: PAIN
     Route: 048
     Dates: start: 20000101, end: 20150417
  2. CELEBREX [Suspect]
     Active Substance: CELECOXIB
     Route: 048
     Dates: start: 20000101, end: 20150417
  3. CELEBREX [Suspect]
     Active Substance: CELECOXIB
     Indication: ANKYLOSING SPONDYLITIS
     Route: 048
     Dates: start: 20000101, end: 20150417

REACTIONS (7)
  - Headache [None]
  - Confusional state [None]
  - Pain in extremity [None]
  - Brain scan abnormal [None]
  - Feeling abnormal [None]
  - Pain [None]
  - Deep vein thrombosis [None]

NARRATIVE: CASE EVENT DATE: 20111111
